FAERS Safety Report 12057208 (Version 1)
Quarter: 2016Q1

REPORT INFORMATION
  Report Type: Report from Study
  Country: CA (occurrence: CA)
  Receive Date: 20160210
  Receipt Date: 20160210
  Transmission Date: 20160526
  Serious: Yes (Hospitalization)
  Sender: FDA-Public Use
  Company Number: CA-ROCHE-1665048

PATIENT
  Sex: Female

DRUGS (5)
  1. ACTEMRA [Suspect]
     Active Substance: TOCILIZUMAB
     Indication: RHEUMATOID ARTHRITIS
     Route: 058
     Dates: start: 20150807
  2. PANTOLOC [Concomitant]
     Active Substance: PANTOPRAZOLE SODIUM
  3. METHOTREXATE [Concomitant]
     Active Substance: METHOTREXATE
  4. APO-FUROSEMIDE [Concomitant]
     Active Substance: FUROSEMIDE
  5. VESICARE [Concomitant]
     Active Substance: SOLIFENACIN SUCCINATE

REACTIONS (2)
  - Pulmonary oedema [Recovered/Resolved]
  - Pneumonia [Not Recovered/Not Resolved]
